FAERS Safety Report 7262433-8 (Version None)
Quarter: 2011Q1

REPORT INFORMATION
  Report Type: 
  Country: None (occurrence: None)
  Receive Date: 20110130
  Receipt Date: 20101118
  Transmission Date: 20110831
  Serious: No
  Sender: FDA-Public Use
  Company Number: US-ABBOTT-10P-163-0686431-00

PATIENT
  Sex: Female

DRUGS (13)
  1. HUMIRA [Suspect]
     Dosage: 80MG LOADING DOSE
     Dates: start: 20101120, end: 20101120
  2. ASACOL [Concomitant]
     Indication: PRODUCT USED FOR UNKNOWN INDICATION
  3. ENTOCORT EC [Concomitant]
     Indication: PRODUCT USED FOR UNKNOWN INDICATION
     Route: 048
  4. NEXIUM [Concomitant]
     Indication: PRODUCT USED FOR UNKNOWN INDICATION
     Dosage: DAILY
     Route: 048
  5. HUMIRA [Suspect]
     Indication: CROHN'S DISEASE
     Dosage: 160MG LOADING DOSE
     Route: 058
     Dates: start: 20101105, end: 20101105
  6. HYDROCODONE [Concomitant]
     Indication: PAIN
     Route: 048
  7. HYDROCODONE [Concomitant]
     Indication: ROTATOR CUFF SYNDROME
  8. IMURAN [Concomitant]
     Indication: PRODUCT USED FOR UNKNOWN INDICATION
     Route: 048
  9. HIGH BLOOD PRESSURE MEDICATION [Concomitant]
     Indication: PRODUCT USED FOR UNKNOWN INDICATION
  10. POTASSIUM CHLORIDE SUPPLEMENT [Concomitant]
     Indication: MINERAL SUPPLEMENTATION
     Dosage: DAILY
  11. HYDROCODONE [Concomitant]
     Indication: MUSCULOSKELETAL DISCOMFORT
  12. HUMIRA [Suspect]
     Dates: start: 20101208
  13. PROZAC [Concomitant]
     Indication: DEPRESSION
     Route: 048

REACTIONS (8)
  - FATIGUE [None]
  - FREQUENT BOWEL MOVEMENTS [None]
  - NAUSEA [None]
  - CROHN'S DISEASE [None]
  - CONSTIPATION [None]
  - ABDOMINAL PAIN [None]
  - DIARRHOEA [None]
  - ABDOMINAL DISTENSION [None]
